FAERS Safety Report 4416108-0 (Version None)
Quarter: 2004Q3

REPORT INFORMATION
  Report Type: 
  Country: None (occurrence: None)
  Receive Date: 20040802
  Receipt Date: 20040722
  Transmission Date: 20050211
  Serious: Yes (Other)
  Sender: FDA-Public Use
  Company Number: 2004-07-1124

PATIENT
  Age: 53 Year
  Sex: Male

DRUGS (3)
  1. CELESTONE PHOSPHATE OPHTHALMIC SOLUTION [Suspect]
     Dates: start: 20000301, end: 20020101
  2. PREDNISOLONE [Suspect]
     Dates: start: 20000301, end: 20010601
  3. PREDNISOLONE SODIUM SUCCINATE INJ [Suspect]
     Dates: start: 20000401, end: 20000601

REACTIONS (3)
  - CATARACT [None]
  - DIABETES MELLITUS [None]
  - DIABETIC NEUROPATHY [None]
